FAERS Safety Report 4413080-4 (Version None)
Quarter: 2004Q3

REPORT INFORMATION
  Report Type: 
  Country: None (occurrence: None)
  Receive Date: 20040802
  Receipt Date: 20040412
  Transmission Date: 20050211
  Serious: Yes (Other)
  Sender: FDA-Public Use
  Company Number: US-ROCHE-364383

PATIENT
  Sex: Female
  Weight: 49.9 kg

DRUGS (2)
  1. ACCUTANE [Suspect]
     Indication: DRUG USE FOR UNKNOWN INDICATION
     Route: 065
     Dates: start: 20031215, end: 20031215
  2. ACCUTANE [Suspect]
     Route: 065
     Dates: start: 20040115, end: 20040115

REACTIONS (6)
  - ABORTION SPONTANEOUS [None]
  - COMPLICATION OF PREGNANCY [None]
  - DRUG EXPOSURE DURING PREGNANCY [None]
  - FEELING ABNORMAL [None]
  - PREGNANCY [None]
  - SINUSITIS [None]
